FAERS Safety Report 12755713 (Version 1)
Quarter: 2016Q3

REPORT INFORMATION
  Report Type: Spontaneous
  Country: ES (occurrence: ES)
  Receive Date: 20160916
  Receipt Date: 20160916
  Transmission Date: 20161109
  Serious: Yes (Other)
  Sender: FDA-Public Use
  Company Number: ES-TEVA-691386ISR

PATIENT
  Age: 60 Year
  Sex: Male

DRUGS (2)
  1. RAMIPRIL CINFA 5 MG COMPRIMIDOS [Suspect]
     Active Substance: RAMIPRIL
     Dosage: 5 MILLIGRAM DAILY;
     Route: 048
     Dates: start: 20151111, end: 20160824
  2. SIMVASTATINA RATIO 40 MG COMP RECUBIERTOS CON PELICULA EFG [Suspect]
     Active Substance: SIMVASTATIN
     Dosage: 40 MILLIGRAM DAILY;
     Route: 048
     Dates: start: 20141231, end: 20160824

REACTIONS (2)
  - Myalgia [Not Recovered/Not Resolved]
  - Cough [Recovering/Resolving]

NARRATIVE: CASE EVENT DATE: 20160601
